FAERS Safety Report 22885071 (Version 4)
Quarter: 2024Q2

REPORT INFORMATION
  Report Type: Report from Study
  Country: RO (occurrence: RO)
  Receive Date: 20230830
  Receipt Date: 20240628
  Transmission Date: 20240716
  Serious: Yes (Death, Hospitalization, Other)
  Sender: FDA-Public Use
  Company Number: RO-GENMAB-2023-01568

PATIENT
  Age: 58 Year
  Sex: Male
  Weight: 95 kg

DRUGS (4)
  1. EPCORITAMAB [Suspect]
     Active Substance: EPCORITAMAB
     Indication: Diffuse large B-cell lymphoma
     Dosage: 0.16 MILLIGRAM, TOTAL
     Route: 058
     Dates: start: 20230818, end: 20230818
  2. SULFAMETHOXAZOLE\TRIMETHOPRIM [Concomitant]
     Active Substance: SULFAMETHOXAZOLE\TRIMETHOPRIM
     Indication: Product used for unknown indication
  3. METHYLPREDNISOLONE ACETATE [Concomitant]
     Active Substance: METHYLPREDNISOLONE ACETATE
     Indication: Product used for unknown indication
  4. ACYCLOVIR [Concomitant]
     Active Substance: ACYCLOVIR
     Indication: Product used for unknown indication

REACTIONS (9)
  - Death [Fatal]
  - Blood urea increased [Fatal]
  - Anuria [Fatal]
  - Blood lactate dehydrogenase increased [Fatal]
  - Hypotension [Fatal]
  - C-reactive protein increased [Fatal]
  - Procalcitonin increased [Fatal]
  - Cytokine release syndrome [Unknown]
  - Neurotoxicity [Not Recovered/Not Resolved]

NARRATIVE: CASE EVENT DATE: 20230819
